FAERS Safety Report 19422749 (Version 1)
Quarter: 2021Q2

REPORT INFORMATION
  Report Type: Spontaneous
  Country: US (occurrence: US)
  Receive Date: 20210616
  Receipt Date: 20210616
  Transmission Date: 20210717
  Serious: No
  Sender: FDA-Public Use
  Company Number: None

PATIENT
  Age: 78 Year
  Sex: Female
  Weight: 88.9 kg

DRUGS (3)
  1. DICLOFENAC (DICLOFENAC NA 1% GEL, TOP) [Suspect]
     Active Substance: DICLOFENAC SODIUM
     Indication: OSTEOARTHRITIS
     Route: 061
     Dates: start: 20200702, end: 20210603
  2. DICLOFENAC (DICLOFENAC NA 1% GEL, TOP) [Suspect]
     Active Substance: DICLOFENAC SODIUM
     Indication: OSTEOARTHRITIS
  3. DICLOFENAC (DICLOFENAC NA 1% GEL, TOP) [Suspect]
     Active Substance: DICLOFENAC SODIUM
     Indication: PAIN
     Route: 061
     Dates: start: 20200702, end: 20210603

REACTIONS (1)
  - Palpitations [None]

NARRATIVE: CASE EVENT DATE: 20210604
